FAERS Safety Report 10011528 (Version 1)
Quarter: 2014Q1

REPORT INFORMATION
  Report Type: Spontaneous
  Country: PL (occurrence: PL)
  Receive Date: 20140314
  Receipt Date: 20140314
  Transmission Date: 20141002
  Serious: Yes (Other)
  Sender: FDA-Public Use
  Company Number: PL-RANBAXY-2014RR-79110

PATIENT
  Age: 26 Year
  Sex: Male

DRUGS (8)
  1. VENLAFAXINE [Suspect]
     Indication: DEPRESSION
     Dosage: UNK
     Route: 065
  2. PAROXETINE [Suspect]
     Indication: DEPRESSION
     Dosage: UNK
     Route: 065
  3. SERTRALINE [Suspect]
     Indication: DEPRESSION
     Dosage: UNK
     Route: 065
  4. MIRTAZAPINE [Suspect]
     Indication: DEPRESSION
     Dosage: UNK
     Route: 065
  5. AGOMELATINE [Suspect]
     Indication: DEPRESSION
     Dosage: UNK
     Route: 065
  6. VALPROIC ACID [Suspect]
     Indication: PERSONALITY DISORDER
     Dosage: UNK
     Route: 065
  7. OLANZAPINE [Suspect]
     Indication: PERSONALITY DISORDER
     Dosage: UNK
     Route: 065
  8. ARIPIPRAZOLE [Suspect]
     Indication: PERSONALITY DISORDER
     Dosage: UNK
     Route: 065

REACTIONS (1)
  - Drug ineffective [Not Recovered/Not Resolved]
